FAERS Safety Report 17198826 (Version 1)
Quarter: 2019Q4

REPORT INFORMATION
  Report Type: Spontaneous
  Country: US (occurrence: US)
  Receive Date: 20191203
  Receipt Date: 20191203
  Transmission Date: 20200122
  Serious: Yes (Other)
  Sender: FDA-Public Use
  Company Number: None

PATIENT
  Age: 52 Year
  Sex: Female

DRUGS (1)
  1. ESTRADIOL DERMAL SYSTEM 0.1MG [Suspect]
     Active Substance: ESTRADIOL
     Indication: MENOPAUSAL SYMPTOMS
     Dosage: ?          OTHER DOSE:0.1MG/24HR;?
     Route: 062
     Dates: start: 20190915, end: 20191015

REACTIONS (6)
  - Product substitution issue [None]
  - Headache [None]
  - Memory impairment [None]
  - Nausea [None]
  - Night sweats [None]
  - Mood altered [None]

NARRATIVE: CASE EVENT DATE: 201909
